FAERS Safety Report 8561631-0 (Version None)
Quarter: 2012Q3

REPORT INFORMATION
  Report Type: 
  Country: None (occurrence: None)
  Receive Date: 20120802
  Receipt Date: 20120503
  Transmission Date: 20120928
  Serious: Yes (Life-Threatening, Hospitalization, Other)
  Sender: FDA-Public Use
  Company Number: US-ROXANE LABORATORIES, INC.-2012-EU-02480GD

PATIENT
  Age: 56 Year
  Sex: Female

DRUGS (7)
  1. SULFAMETHOXAZOLE AND TRIMETHOPRIM [Suspect]
     Indication: ANTIBIOTIC PROPHYLAXIS
     Dosage: DOUBLE STRENGTH
     Route: 048
  2. PENTAMIDINE [Concomitant]
     Indication: PROPHYLAXIS
     Route: 055
  3. FLUCONAZOLE [Concomitant]
     Indication: ANTIBIOTIC PROPHYLAXIS
     Dosage: 100 MG
  4. ACYCLOVIR [Concomitant]
     Indication: ANTIBIOTIC PROPHYLAXIS
     Dosage: 800 MG
  5. LEVOFLOXACIN [Suspect]
     Indication: ANTIBIOTIC PROPHYLAXIS
     Dosage: 250 MG
  6. PREDNISONE [Suspect]
     Indication: CHRONIC GRAFT VERSUS HOST DISEASE
     Dosage: 10 MG
  7. SULFAMETHOXAZOLE AND TRIMETHOPRIM [Suspect]
     Indication: PNEUMOCYSTIS JIROVECI PNEUMONIA
     Route: 042

REACTIONS (17)
  - PNEUMOCYSTIS JIROVECI PNEUMONIA [None]
  - TACHYCARDIA [None]
  - RESPIRATORY FAILURE [None]
  - MENTAL STATUS CHANGES [None]
  - CLOSTRIDIUM DIFFICILE COLITIS [None]
  - DIARRHOEA [None]
  - ABDOMINAL PAIN [None]
  - HYPOXIA [None]
  - PSEUDOMEMBRANOUS COLITIS [None]
  - HYPOTENSION [None]
  - URINARY TRACT INFECTION ENTEROCOCCAL [None]
  - ENTERITIS INFECTIOUS [None]
  - ABDOMINAL DISTENSION [None]
  - RESPIRATORY MUSCLE WEAKNESS [None]
  - CLOSTRIDIAL INFECTION [None]
  - CONFUSIONAL STATE [None]
  - SEPTIC SHOCK [None]
